FAERS Safety Report 5346772-3 (Version None)
Quarter: 2007Q2

REPORT INFORMATION
  Report Type: 
  Country: None (occurrence: None)
  Receive Date: 20070604
  Receipt Date: 20070518
  Transmission Date: 20071010
  Serious: Yes (Hospitalization)
  Sender: FDA-Public Use
  Company Number: DSA_29958_2007

PATIENT
  Age: 61 Year
  Sex: Male

DRUGS (6)
  1. RENIVACE (RENIVACE [Suspect]
     Indication: HYPERTENSION
     Dosage: (2.5 MG QD ORAL)
  2. BAYASPIRIN (BAYASPIRIN) [Suspect]
     Indication: ANTICOAGULANT THERAPY
     Dosage: 100 MG QD ORAL
     Route: 048
  3. SELOKEN/00376902/ (SELOKEN) [Suspect]
     Indication: ARRHYTHMIA
     Dosage: (20 MG TID ORAL)
     Route: 048
  4. SIGMART (SIGMART) [Suspect]
     Indication: ARRHYTHMIA
     Dosage: (5 MG TID ORAL)
     Route: 048
  5. FRANDOL (FRANDOL) [Suspect]
     Indication: ANGINA PECTORIS
     Dosage: (20 MG BID ORAL)
     Route: 048
  6. BAYLOTENSIN (BAYLOTENSIN) [Suspect]
     Indication: ANGINA PECTORIS
     Dosage: (5 MG QD ORAL)
     Route: 048

REACTIONS (2)
  - CARDIAC DISORDER [None]
  - LIVER FUNCTION TEST ABNORMAL [None]
